FAERS Safety Report 15456529 (Version 1)
Quarter: 2018Q4

REPORT INFORMATION
  Report Type: Spontaneous
  Country: BR (occurrence: BR)
  Receive Date: 20181002
  Receipt Date: 20181002
  Transmission Date: 20190204
  Serious: Yes (Other)
  Sender: FDA-Public Use
  Company Number: BR-PFIZER INC-2018390603

PATIENT
  Sex: Female

DRUGS (1)
  1. LORAX [Suspect]
     Active Substance: LORAZEPAM
     Dosage: 4 MG, DAILY (2 TABLETS DAILY)

REACTIONS (7)
  - Diabetes mellitus [Not Recovered/Not Resolved]
  - Panic reaction [Not Recovered/Not Resolved]
  - Crying [Not Recovered/Not Resolved]
  - Depression [Not Recovered/Not Resolved]
  - Intentional product misuse [Unknown]
  - Feeling of despair [Not Recovered/Not Resolved]
  - Dependence [Not Recovered/Not Resolved]
